FAERS Safety Report 24661464 (Version 1)
Quarter: 2024Q4

REPORT INFORMATION
  Report Type: Spontaneous
  Country: US (occurrence: US)
  Receive Date: 20241125
  Receipt Date: 20241125
  Transmission Date: 20250115
  Serious: Yes (Other)
  Sender: ABBVIE
  Company Number: US-ABBVIE-6007536

PATIENT
  Sex: Female

DRUGS (3)
  1. REFRESH TEARS PF [Suspect]
     Active Substance: CARBOXYMETHYLCELLULOSE SODIUM\GLYCERIN
     Indication: Product used for unknown indication
     Dosage: MULTI-DOSE PRESERVATIVE FREE
     Route: 047
  2. REFRESH TEARS PF [Suspect]
     Active Substance: CARBOXYMETHYLCELLULOSE SODIUM\GLYCERIN
  3. REFRESH TEARS PF [Suspect]
     Active Substance: CARBOXYMETHYLCELLULOSE SODIUM\GLYCERIN

REACTIONS (5)
  - Cataract [Unknown]
  - Product container issue [Not Recovered/Not Resolved]
  - Product packaging issue [Not Recovered/Not Resolved]
  - Product container issue [Not Recovered/Not Resolved]
  - Product packaging issue [Not Recovered/Not Resolved]
